FAERS Safety Report 6538688-1 (Version None)
Quarter: 2010Q1

REPORT INFORMATION
  Report Type: 
  Country: None (occurrence: None)
  Receive Date: 20100114
  Receipt Date: 20100114
  Transmission Date: 20100710
  Serious: Yes (Hospitalization)
  Sender: FDA-Public Use
  Company Number: None

PATIENT
  Sex: Female
  Weight: 63.5036 kg

DRUGS (2)
  1. PRIVIGEN [Suspect]
     Indication: MULTIPLE SCLEROSIS
     Dosage: 45GM X 1 EVERY 4 WEEKS IV DRIP
     Route: 041
     Dates: start: 20100112, end: 20100112
  2. PRIVIGEN [Suspect]

REACTIONS (3)
  - INFUSION RELATED REACTION [None]
  - PRURITUS [None]
  - URTICARIA [None]
